FAERS Safety Report 5637326-X (Version None)
Quarter: 2008Q1

REPORT INFORMATION
  Report Type: 
  Country: None (occurrence: None)
  Receive Date: 20080220
  Receipt Date: 20080207
  Transmission Date: 20080703
  Serious: Yes (Hospitalization)
  Sender: FDA-Public Use
  Company Number: 164701

PATIENT
  Age: 60 Year
  Sex: Female
  Weight: 65.318 kg

DRUGS (6)
  1. AVONEX [Suspect]
     Indication: MULTIPLE SCLEROSIS
     Dosage: 30 UG;QW;IM
     Route: 030
     Dates: start: 19981116, end: 20071107
  2. ZOCOR [Concomitant]
  3. XANAX [Concomitant]
  4. IBUPROFEN [Concomitant]
  5. PRILOSEC [Concomitant]
  6. DARVOCET [Concomitant]

REACTIONS (3)
  - CHILLS [None]
  - LUNG ADENOCARCINOMA [None]
  - TREMOR [None]
